FAERS Safety Report 6141363-9 (Version None)
Quarter: 2009Q2

REPORT INFORMATION
  Report Type: 
  Country: None (occurrence: None)
  Receive Date: 20090401
  Receipt Date: 20090401
  Transmission Date: 20091009
  Serious: Yes (Hospitalization)
  Sender: FDA-Public Use
  Company Number: None

PATIENT
  Sex: Female
  Weight: 90 kg

DRUGS (2)
  1. HYDROMORPHONE HCL [Suspect]
     Indication: HIP FRACTURE
     Dosage: 1MG X1 IV
     Route: 042
     Dates: start: 20080512, end: 20080512
  2. HYDROMORPHONE HCL [Suspect]
     Indication: PROCEDURAL PAIN
     Dosage: 1MG X1 IV
     Route: 042
     Dates: start: 20080512, end: 20080512

REACTIONS (3)
  - DRUG EFFECT DECREASED [None]
  - HYPOXIA [None]
  - RESPIRATORY DEPRESSION [None]
